FAERS Safety Report 18787413 (Version 4)
Quarter: 2025Q1

REPORT INFORMATION
  Report Type: Spontaneous
  Country: US (occurrence: US)
  Receive Date: 20210125
  Receipt Date: 20250319
  Transmission Date: 20250409
  Serious: No
  Sender: MERZ
  Company Number: US-ACORDA-ACO_163841_2020

PATIENT
  Sex: Male
  Weight: 80.7 kg

DRUGS (5)
  1. AMPYRA [Suspect]
     Active Substance: DALFAMPRIDINE
     Indication: Multiple sclerosis
     Dosage: 10 MILLIGRAM, Q 12 HRS
     Route: 048
     Dates: start: 20200118
  2. AMPYRA [Suspect]
     Active Substance: DALFAMPRIDINE
     Indication: Gait disturbance
     Dosage: 10 MILLIGRAM
     Route: 048
     Dates: start: 20210423, end: 20210427
  3. AMPYRA [Suspect]
     Active Substance: DALFAMPRIDINE
     Dosage: 1 DOSAGE FORM, QD
     Route: 048
     Dates: end: 20200211
  4. AMPYRA [Suspect]
     Active Substance: DALFAMPRIDINE
     Dosage: 1 DOSAGE FORM, BID
     Route: 048
     Dates: start: 20200127
  5. AMPYRA [Suspect]
     Active Substance: DALFAMPRIDINE
     Dosage: 10 MILLIGRAM, BID
     Route: 048
     Dates: start: 20200128

REACTIONS (22)
  - Pain in extremity [Recovering/Resolving]
  - Screaming [Recovering/Resolving]
  - Fine motor skill dysfunction [Not Recovered/Not Resolved]
  - Ill-defined disorder [Not Recovered/Not Resolved]
  - Pain [Unknown]
  - Gait inability [Not Recovered/Not Resolved]
  - Limb discomfort [Not Recovered/Not Resolved]
  - Unevaluable event [Unknown]
  - Muscular weakness [Not Recovered/Not Resolved]
  - Loss of personal independence in daily activities [Not Recovered/Not Resolved]
  - Unevaluable event [Not Recovered/Not Resolved]
  - Gait disturbance [Not Recovered/Not Resolved]
  - Adverse event [Recovered/Resolved]
  - Adverse drug reaction [Not Recovered/Not Resolved]
  - Multiple sclerosis [Recovering/Resolving]
  - Fatigue [Not Recovered/Not Resolved]
  - Multiple sclerosis [Unknown]
  - Balance disorder [Recovered/Resolved]
  - Paraesthesia [Unknown]
  - Asthenia [Recovering/Resolving]
  - Asthenia [Not Recovered/Not Resolved]
  - Asthenia [Not Recovered/Not Resolved]

NARRATIVE: CASE EVENT DATE: 20200101
